FAERS Safety Report 6593103-7 (Version None)
Quarter: 2010Q1

REPORT INFORMATION
  Report Type: 
  Country: None (occurrence: None)
  Receive Date: 20100222
  Receipt Date: 20100128
  Transmission Date: 20100710
  Serious: Yes (Death)
  Sender: FDA-Public Use
  Company Number: JP-BAYER-200911634BYL

PATIENT
  Age: 61 Year
  Sex: Male
  Weight: 52 kg

DRUGS (9)
  1. FLUDARA [Suspect]
     Indication: APLASTIC ANAEMIA
     Dosage: AS USED: 35 MG  UNIT DOSE: 50 MG
     Route: 042
     Dates: start: 20081114, end: 20081118
  2. FLUDARA [Suspect]
     Route: 042
     Dates: start: 20081214, end: 20081217
  3. MELPHALAN [Concomitant]
     Indication: APLASTIC ANAEMIA
     Route: 065
     Dates: start: 20081101
  4. CYCLOPHOSPHAMIDE [Concomitant]
     Indication: APLASTIC ANAEMIA
     Route: 065
     Dates: start: 20081201
  5. TACROLIMUS [Concomitant]
     Indication: PROPHYLAXIS AGAINST GRAFT VERSUS HOST DISEASE
     Route: 065
     Dates: start: 20081101
  6. TACROLIMUS [Concomitant]
     Route: 065
     Dates: start: 20081201
  7. METHOTREXATE [Concomitant]
     Indication: PROPHYLAXIS AGAINST GRAFT VERSUS HOST DISEASE
     Dates: start: 20081101
  8. METHOTREXATE [Concomitant]
     Dates: start: 20081201
  9. CYCLOSPORINE [Concomitant]

REACTIONS (2)
  - POSTRENAL FAILURE [None]
  - RENAL IMPAIRMENT [None]
